FAERS Safety Report 5020733-6 (Version None)
Quarter: 2006Q2

REPORT INFORMATION
  Report Type: 
  Country: None (occurrence: None)
  Receive Date: 20060601
  Receipt Date: 20060518
  Transmission Date: 20061013
  Serious: Yes (Life-Threatening)
  Sender: FDA-Public Use
  Company Number: 14069

PATIENT
  Age: 32 Year
  Sex: Female
  Weight: 65 kg

DRUGS (5)
  1. PROPOFOL [Suspect]
     Indication: SEDATION
     Dates: start: 20051221, end: 20051221
  2. FENTANYL TRANSDERMAL SYSTEM [Suspect]
     Indication: SEDATION
     Dates: start: 20051221, end: 20051221
  3. ZOFRAN [Suspect]
     Indication: SEDATION
     Dates: start: 20051221, end: 20051221
  4. MAXOLON [Suspect]
     Indication: SEDATION
     Dates: start: 20051221, end: 20051221
  5. CISATRACURIUM BESYLATE [Suspect]
     Indication: SEDATION
     Dates: start: 20051221, end: 20051221

REACTIONS (1)
  - ANAPHYLACTIC REACTION [None]
